FAERS Safety Report 10477535 (Version 1)
Quarter: 2014Q3

REPORT INFORMATION
  Report Type: Spontaneous
  Country: GB (occurrence: None)
  Receive Date: 20140923
  Receipt Date: 20140923
  Transmission Date: 20150326
  Serious: Yes (Hospitalization)
  Sender: FDA-Public Use
  Company Number: IMP_07930_2014

PATIENT
  Age: 73 Year
  Sex: Female

DRUGS (3)
  1. FUROSEMIDE. [Concomitant]
     Active Substance: FUROSEMIDE
  2. OMEPRAZOLE. [Suspect]
     Active Substance: OMEPRAZOLE
     Indication: GASTROOESOPHAGEAL REFLUX DISEASE
     Dates: start: 1999
  3. OMEPRAZOLE. [Suspect]
     Active Substance: OMEPRAZOLE
     Indication: OESOPHAGITIS
     Dates: start: 1999

REACTIONS (10)
  - Arthralgia [None]
  - Muscle spasms [None]
  - Hypocalcaemia [None]
  - Balance disorder [None]
  - Diarrhoea [None]
  - Chest pain [None]
  - Abdominal pain [None]
  - Lethargy [None]
  - Rash pruritic [None]
  - Hypomagnesaemia [None]

NARRATIVE: CASE EVENT DATE: 200506
